FAERS Safety Report 4580067-0 (Version None)
Quarter: 2005Q1

REPORT INFORMATION
  Report Type: 
  Country: None (occurrence: None)
  Receive Date: 20050214
  Receipt Date: 20041123
  Transmission Date: 20050727
  Serious: Yes (Life-Threatening, Hospitalization)
  Sender: FDA-Public Use
  Company Number: DE-MERCK-0411DEU00492

PATIENT
  Age: 57 Year
  Sex: Male
  Weight: 88 kg

DRUGS (8)
  1. VIOXX [Suspect]
     Indication: SPINAL OSTEOARTHRITIS
     Route: 048
     Dates: start: 20001013
  2. VIOXX [Suspect]
     Indication: ARTHROPATHY
     Route: 048
     Dates: start: 20001013
  3. METFORMIN [Concomitant]
     Route: 065
  4. ACARBOSE [Concomitant]
     Route: 065
  5. PANTOPRAZOLE SODIUM [Concomitant]
     Route: 065
  6. SILIBININ [Concomitant]
     Indication: ARRHYTHMIA
     Route: 065
  7. MAGNESIUM ASPARTATE AND POTASSIUM ASPARTATE [Concomitant]
     Route: 065
  8. TETRAZEPAM [Concomitant]
     Route: 065

REACTIONS (6)
  - DIABETES MELLITUS [None]
  - HYPERCOAGULATION [None]
  - INTESTINAL HAEMORRHAGE [None]
  - INTESTINAL INFARCTION [None]
  - INTESTINAL ISCHAEMIA [None]
  - MESENTERIC VEIN THROMBOSIS [None]
